FAERS Safety Report 13544527 (Version 1)
Quarter: 2017Q2

REPORT INFORMATION
  Report Type: Report from Study
  Country: US (occurrence: US)
  Receive Date: 20170515
  Receipt Date: 20170515
  Transmission Date: 20170830
  Serious: Yes (Other)
  Sender: FDA-Public Use
  Company Number: PHHO2017US001940

PATIENT
  Age: 53 Year
  Sex: Female
  Weight: 102.7 kg

DRUGS (1)
  1. GSK1120212 [Suspect]
     Active Substance: TRAMETINIB
     Indication: TRIPLE NEGATIVE BREAST CANCER
     Dosage: 2 MG, QD
     Route: 048
     Dates: start: 20150403, end: 20150501

REACTIONS (5)
  - Bile duct stenosis [Recovering/Resolving]
  - Pancreatitis [Recovering/Resolving]
  - Aspartate aminotransferase increased [Recovering/Resolving]
  - Alanine aminotransferase increased [Recovering/Resolving]
  - Blood alkaline phosphatase increased [Recovering/Resolving]

NARRATIVE: CASE EVENT DATE: 20150501
